FAERS Safety Report 4438538-3 (Version None)
Quarter: 2004Q3

REPORT INFORMATION
  Report Type: 
  Country: None (occurrence: None)
  Receive Date: 20040726
  Receipt Date: 20040514
  Transmission Date: 20050211
  Serious: No
  Sender: FDA-Public Use
  Company Number: USA040567689

PATIENT
  Age: 69 Year
  Sex: Female

DRUGS (3)
  1. FORTEO [Suspect]
     Indication: OSTEOPOROSIS
     Dates: start: 20031201
  2. DOXYCYCLINE [Concomitant]
  3. ESTROGEN NOS [Concomitant]

REACTIONS (4)
  - BLEPHARITIS [None]
  - EYE DISORDER [None]
  - EYE PAIN [None]
  - EYELID OEDEMA [None]
